FAERS Safety Report 8128850-9 (Version None)
Quarter: 2012Q1

REPORT INFORMATION
  Report Type: 
  Country: None (occurrence: None)
  Receive Date: 20120210
  Receipt Date: 20110331
  Transmission Date: 20120608
  Serious: No
  Sender: FDA-Public Use
  Company Number: US-BRISTOL-MYERS SQUIBB COMPANY-15647837

PATIENT
  Age: 83 Year
  Sex: Female

DRUGS (3)
  1. XANAX [Concomitant]
  2. ORENCIA [Suspect]
     Dosage: NO OF TREATMENTS:3
  3. METHOTREXATE [Suspect]

REACTIONS (2)
  - FATIGUE [None]
  - SKIN EXFOLIATION [None]
